FAERS Safety Report 7797306-5 (Version None)
Quarter: 2011Q4

REPORT INFORMATION
  Report Type: 
  Country: None (occurrence: None)
  Receive Date: 20111005
  Receipt Date: 20110929
  Transmission Date: 20120403
  Serious: No
  Sender: FDA-Public Use
  Company Number: US-PFIZER INC-2011233587

PATIENT

DRUGS (1)
  1. CLINDAMYCIN HCL [Suspect]
     Dosage: 300 MG, UNK

REACTIONS (1)
  - DYSPHAGIA [None]
